FAERS Safety Report 6411250-7 (Version None)
Quarter: 2009Q4

REPORT INFORMATION
  Report Type: 
  Country: None (occurrence: None)
  Receive Date: 20091022
  Receipt Date: 20091012
  Transmission Date: 20100525
  Serious: Yes (Death)
  Sender: FDA-Public Use
  Company Number: IT-PFIZER INC-2009281793

PATIENT
  Age: 43 Year

DRUGS (8)
  1. NIFEDIPINE [Suspect]
     Indication: HYPERTENSION
     Dosage: 30 MG, 2X/DAY
  2. GABAPENTIN [Interacting]
     Indication: NEUROPATHY PERIPHERAL
     Dosage: 400 MG, UNK
  3. FOSAMPRENAVIR [Interacting]
     Indication: HIV INFECTION
     Dosage: 700 MG, UNK
  4. RITONAVIR [Interacting]
     Indication: HIV INFECTION
     Dosage: 100 MG, 2X/DAY
  5. DISULFIRAM [Interacting]
     Indication: ALCOHOLISM
     Dosage: 200 MG, UNK
  6. AMITRIPTYLINE [Interacting]
     Indication: ALCOHOLISM
     Dosage: 25 MG, UNK
  7. EMTRICITABINE/TENOFOVIR [Interacting]
     Indication: HIV INFECTION
  8. LORAZEPAM [Interacting]
     Indication: INSOMNIA

REACTIONS (2)
  - DRUG INTERACTION [None]
  - LACTIC ACIDOSIS [None]
